FAERS Safety Report 5177197-1 (Version None)
Quarter: 2006Q4

REPORT INFORMATION
  Report Type: 
  Country: None (occurrence: None)
  Receive Date: 20061218
  Receipt Date: 20061212
  Transmission Date: 20070319
  Serious: Yes (Hospitalization)
  Sender: FDA-Public Use
  Company Number: NL-BRISTOL-MYERS SQUIBB COMPANY-13609300

PATIENT
  Age: 55 Year
  Sex: Female

DRUGS (5)
  1. CISPLATIN [Suspect]
     Indication: ENDOMETRIAL CANCER
     Dates: start: 20050802, end: 20050802
  2. DOXORUBICIN HCL [Suspect]
     Indication: ENDOMETRIAL CANCER
     Dates: start: 20050802, end: 20050802
  3. LEVOTHYROXINE SODIUM [Concomitant]
  4. AMARYL [Concomitant]
  5. ATORVASTATIN [Concomitant]

REACTIONS (1)
  - FEBRILE NEUTROPENIA [None]
